FAERS Safety Report 9003134 (Version 1)
Quarter: 2013Q1

REPORT INFORMATION
  Report Type: Spontaneous
  Country: US (occurrence: US)
  Receive Date: 20130108
  Receipt Date: 20130108
  Transmission Date: 20140127
  Serious: Yes (Hospitalization, Other)
  Sender: FDA-Public Use
  Company Number: US-BAYER-2013-000797

PATIENT
  Age: 30 Year
  Sex: Female

DRUGS (13)
  1. YAZ [Suspect]
     Indication: MOOD SWINGS
  2. YAZ [Suspect]
     Indication: MENSTRUATION IRREGULAR
  3. ADDERALL [Concomitant]
  4. KEFLEX [Concomitant]
  5. KLONOPIN [Concomitant]
  6. PROZAC [Concomitant]
  7. PERCOCET [Concomitant]
  8. LYRICA [Concomitant]
  9. SEROQUEL [Concomitant]
  10. FLUVIRIN [Concomitant]
     Dosage: UNK
     Dates: start: 20120125
  11. OXYCODONE/APAP [Concomitant]
     Dosage: 7.5/325 MG
     Dates: start: 20120206
  12. AMPHETAMINE SALTS [Concomitant]
     Dosage: 30 MG, UNK
     Dates: start: 20120216
  13. PROAIR HFA [Concomitant]
     Dosage: UNK
     Route: 045
     Dates: start: 20071205

REACTIONS (3)
  - Deep vein thrombosis [Recovered/Resolved]
  - Pulmonary embolism [None]
  - Thrombophlebitis superficial [None]
